FAERS Safety Report 9630700 (Version 1)
Quarter: 2013Q4

REPORT INFORMATION
  Report Type: Spontaneous
  Country: GB (occurrence: None)
  Receive Date: 20131011
  Receipt Date: 20131011
  Transmission Date: 20140711
  Serious: Yes (Other)
  Sender: FDA-Public Use
  Company Number: CL-523-2013

PATIENT
  Sex: Female

DRUGS (1)
  1. HALOPERIDOL [Suspect]
     Indication: MENTAL DISORDER
     Dosage: THREE TIMES A DAY
     Route: 048

REACTIONS (5)
  - Hypothermia [None]
  - Treatment noncompliance [None]
  - Fatigue [None]
  - Mood swings [None]
  - Malaise [None]
